FAERS Safety Report 24299961 (Version 1)
Quarter: 2024Q3

REPORT INFORMATION
  Report Type: Spontaneous
  Country: US (occurrence: None)
  Receive Date: 20240908
  Receipt Date: 20240908
  Transmission Date: 20241017
  Serious: Yes (Disabling)
  Sender: Public
  Company Number: None

PATIENT
  Age: 77 Year
  Sex: Female
  Weight: 74.7 kg

DRUGS (19)
  1. ROSUVASTATIN [Suspect]
     Active Substance: ROSUVASTATIN\ROSUVASTATIN CALCIUM
     Indication: Blood cholesterol increased
     Dosage: OTHER QUANTITY : 1 TABLET(S);?FREQUENCY : AT BEDTIME;?
     Route: 048
     Dates: start: 20240902, end: 20240905
  2. NALTREXONE [Concomitant]
     Active Substance: NALTREXONE
  3. GEMTESA [Concomitant]
     Active Substance: VIBEGRON
  4. METOPROLOL [Concomitant]
     Active Substance: METOPROLOL
  5. CHOLESTYRAMINE [Concomitant]
     Active Substance: CHOLESTYRAMINE
  6. MONTELUKAST [Concomitant]
     Active Substance: MONTELUKAST SODIUM
  7. RAPAMYCIN [Concomitant]
     Active Substance: SIROLIMUS
  8. D3+MK7 [Concomitant]
  9. magnesium glycerinate [Concomitant]
  10. HERBALS [Concomitant]
     Active Substance: HERBALS
  11. UBIQUINOL [Concomitant]
     Active Substance: UBIQUINOL
  12. VITAMIN B COMPLEX [Concomitant]
     Active Substance: CYANOCOBALAMIN\DEXPANTHENOL\NIACINAMIDE\PYRIDOXINE HYDROCHLORIDE\RIBOFLAVIN 5^-PHOSPHATE SODIUM\THIA
  13. VITAMIN C [Concomitant]
     Active Substance: ASCORBIC ACID
  14. QUERCITIN [Concomitant]
  15. ALLEGRA [Concomitant]
     Active Substance: FEXOFENADINE HYDROCHLORIDE
  16. CETIRIZINE [Concomitant]
     Active Substance: CETIRIZINE HYDROCHLORIDE
  17. FAMOTIDINE [Concomitant]
     Active Substance: FAMOTIDINE
  18. ZINC [Concomitant]
     Active Substance: ZINC
  19. CALCIUM [Concomitant]
     Active Substance: CALCIUM

REACTIONS (6)
  - Erythema [None]
  - Swelling face [None]
  - Ocular hyperaemia [None]
  - Eye swelling [None]
  - Abnormal sensation in eye [None]
  - Urticaria [None]

NARRATIVE: CASE EVENT DATE: 20240905
